FAERS Safety Report 20221250 (Version 1)
Quarter: 2021Q4

REPORT INFORMATION
  Report Type: Spontaneous
  Country: FR (occurrence: FR)
  Receive Date: 20211223
  Receipt Date: 20211223
  Transmission Date: 20220304
  Serious: Yes (Hospitalization)
  Sender: FDA-Public Use
  Company Number: None

PATIENT
  Age: 41 Year
  Sex: Male
  Weight: 62.5 kg

DRUGS (3)
  1. FLUDARABINE [Suspect]
     Active Substance: FLUDARABINE PHOSPHATE
     Indication: Bone marrow conditioning regimen
     Dosage: 43.3 MG IV - 3 DAYS (8/9/10 APRIL 2021), FLUDARABINE PHOSPHATE
     Route: 042
     Dates: start: 20210408, end: 20210410
  2. CYCLOPHOSPHAMIDE [Suspect]
     Active Substance: CYCLOPHOSPHAMIDE
     Indication: Bone marrow conditioning regimen
     Dosage: 435 MG IV - 3 DAYS (8/9/10 APRIL 2021)
     Route: 042
     Dates: start: 20210408, end: 20210410
  3. KYMRIAH [Suspect]
     Active Substance: TISAGENLECLEUCEL
     Indication: Diffuse large B-cell lymphoma
     Dosage: 1.2MUI IN SINGLE DOSE ON CIP ON 04/13/2021, KYMRIAH 1.2 X 106 - 6 X 108 CELLS, DISPERSION FOR INFUSI
     Route: 042
     Dates: start: 20210413, end: 20210413

REACTIONS (1)
  - Cytokine release syndrome [Recovered/Resolved]

NARRATIVE: CASE EVENT DATE: 20210414
